FAERS Safety Report 16288021 (Version 3)
Quarter: 2020Q1

REPORT INFORMATION
  Report Type: Report from Study
  Country: US (occurrence: US)
  Receive Date: 20190508
  Receipt Date: 20200207
  Transmission Date: 20200409
  Serious: Yes (Hospitalization)
  Sender: FDA-Public Use
  Company Number: US-ACTELION-A-US2019-188606

PATIENT
  Sex: Female
  Weight: 48.07 kg

DRUGS (2)
  1. OPSUMIT [Suspect]
     Active Substance: MACITENTAN
     Indication: PULMONARY ARTERIAL HYPERTENSION
     Dosage: 10 MG, QD
     Route: 048
  2. TADALAFIL. [Concomitant]
     Active Substance: TADALAFIL

REACTIONS (6)
  - Dyspnoea [Unknown]
  - Hospice care [Unknown]
  - Nasal congestion [Unknown]
  - Malaise [Unknown]
  - Fluid retention [Unknown]
  - Pneumonia [Unknown]
